FAERS Safety Report 15372498 (Version 1)
Quarter: 2018Q3

REPORT INFORMATION
  Report Type: Other
  Country: JP (occurrence: JP)
  Receive Date: 20180911
  Receipt Date: 20180911
  Transmission Date: 20181010
  Serious: Yes (Other)
  Sender: FDA-Public Use
  Company Number: JP-TEIKOKU PHARMA USA-TPU2018-00524

PATIENT
  Sex: Female

DRUGS (1)
  1. LIDOCAINE. [Suspect]
     Active Substance: LIDOCAINE
     Indication: LOCAL ANAESTHESIA
     Route: 065

REACTIONS (4)
  - Nausea [Recovered/Resolved]
  - Type I hypersensitivity [Recovered/Resolved]
  - Tachycardia [Recovered/Resolved]
  - Gait disturbance [Recovered/Resolved]
